FAERS Safety Report 7041683-X (Version None)
Quarter: 2010Q4

REPORT INFORMATION
  Report Type: 
  Country: None (occurrence: None)
  Receive Date: 20101013
  Receipt Date: 20100614
  Transmission Date: 20110411
  Serious: No
  Sender: FDA-Public Use
  Company Number: US-ASTRAZENECA-2010SE27593

PATIENT
  Age: 64 Year
  Sex: Female

DRUGS (6)
  1. SYMBICORT [Suspect]
     Indication: ASTHMA
     Route: 055
     Dates: start: 20100501
  2. SYMBICORT [Suspect]
     Indication: BRONCHITIS CHRONIC
     Route: 055
     Dates: start: 20100501
  3. BLOOD PRESSURE MEDICATION [Concomitant]
  4. THYROID MEDICATION [Concomitant]
  5. PREVENTIL [Concomitant]
  6. VITAMINS [Concomitant]

REACTIONS (3)
  - ARTHRALGIA [None]
  - OROPHARYNGEAL PAIN [None]
  - STOMATITIS [None]
